FAERS Safety Report 7413710-9 (Version None)
Quarter: 2011Q2

REPORT INFORMATION
  Report Type: 
  Country: None (occurrence: None)
  Receive Date: 20110413
  Receipt Date: 20110407
  Transmission Date: 20111010
  Serious: Yes (Death, Life-Threatening)
  Sender: FDA-Public Use
  Company Number: JP-ASTRAZENECA-2011SE12728

PATIENT
  Age: 23972 Day
  Sex: Male
  Weight: 80 kg

DRUGS (11)
  1. MEROPENEM [Suspect]
     Indication: FEBRILE NEUTROPENIA
     Route: 042
     Dates: start: 20110216, end: 20110216
  2. FUNGUARD [Concomitant]
     Route: 042
     Dates: start: 20110204
  3. CHEMOTHERAPY [Concomitant]
     Dates: start: 20110208
  4. NEUTROGIN [Concomitant]
     Route: 065
     Dates: start: 20110213
  5. LANSOPRAZOLE [Concomitant]
     Route: 048
     Dates: start: 20110214, end: 20110216
  6. DEPAKENE [Concomitant]
     Route: 048
     Dates: start: 20110214
  7. ALBUMINATE [Concomitant]
     Route: 042
     Dates: start: 20110216, end: 20110216
  8. TARGOCID [Concomitant]
     Route: 042
     Dates: start: 20110217, end: 20110218
  9. MODACIN [Concomitant]
     Dates: start: 20110204, end: 20110215
  10. RISPERIDONE [Concomitant]
     Route: 048
     Dates: start: 20110214
  11. WINTERMIN [Concomitant]
     Route: 048
     Dates: start: 20110215

REACTIONS (3)
  - HEPATIC FUNCTION ABNORMAL [None]
  - SHOCK [None]
  - RENAL IMPAIRMENT [None]
